FAERS Safety Report 8201106-1 (Version None)
Quarter: 2012Q1

REPORT INFORMATION
  Report Type: 
  Country: None (occurrence: None)
  Receive Date: 20120312
  Receipt Date: 20110826
  Transmission Date: 20120608
  Serious: No
  Sender: FDA-Public Use
  Company Number: US-AMGEN-USASP2011032184

PATIENT
  Age: 89 Year
  Sex: Female
  Weight: 55.782 kg

DRUGS (6)
  1. PROLIA [Suspect]
     Indication: OSTEOPOROSIS POSTMENOPAUSAL
     Dosage: 60 MG, Q6MO
     Dates: start: 20110103
  2. PRILOSEC [Concomitant]
     Dosage: 20 MG, BID
  3. ALDACTAZIDE [Concomitant]
  4. CELEBREX [Concomitant]
     Dosage: 200 MG, UNK
  5. SLOW FE [Concomitant]
     Dosage: UNK UNK, 3 TIMES/WK
  6. COZAAR [Concomitant]
     Dosage: 50 MG, UNK

REACTIONS (6)
  - WEIGHT INCREASED [None]
  - WEIGHT DECREASED [None]
  - HYPOPHAGIA [None]
  - INSOMNIA [None]
  - ORAL PAIN [None]
  - TOOTH ABSCESS [None]
